FAERS Safety Report 10860899 (Version 1)
Quarter: 2015Q1

REPORT INFORMATION
  Report Type: Spontaneous
  Country: US (occurrence: US)
  Receive Date: 20150224
  Receipt Date: 20150224
  Transmission Date: 20150721
  Serious: Yes (Hospitalization, Other)
  Sender: FDA-Public Use
  Company Number: US-ASTRAZENECA-2015SE16004

PATIENT
  Age: 23802 Day
  Sex: Female
  Weight: 84.4 kg

DRUGS (11)
  1. LOSARTAN [Concomitant]
     Active Substance: LOSARTAN
     Indication: BLOOD PRESSURE ABNORMAL
     Route: 048
  2. DIGOXIN. [Concomitant]
     Active Substance: DIGOXIN
     Indication: BLOOD PRESSURE ABNORMAL
     Route: 048
     Dates: start: 2013
  3. REGLAN [Concomitant]
     Active Substance: METOCLOPRAMIDE HYDROCHLORIDE
     Indication: ABDOMINAL DISCOMFORT
  4. PRADAXA [Concomitant]
     Active Substance: DABIGATRAN ETEXILATE MESYLATE
     Indication: ANTICOAGULANT THERAPY
     Route: 048
     Dates: start: 2013, end: 201501
  5. HYDROCHLOZIDE [Concomitant]
     Indication: ATRIAL FIBRILLATION
     Dates: start: 2013
  6. PREVICID [Concomitant]
     Indication: ABDOMINAL DISCOMFORT
     Route: 048
  7. LORTAB [Concomitant]
     Active Substance: ACETAMINOPHEN\HYDROCODONE BITARTRATE
     Indication: RHEUMATOID ARTHRITIS
     Route: 048
     Dates: start: 2008
  8. DILTIAZEM [Concomitant]
     Active Substance: DILTIAZEM
     Route: 048
     Dates: start: 2013
  9. SYMBICORT [Suspect]
     Active Substance: BUDESONIDE\FORMOTEROL FUMARATE DIHYDRATE
     Indication: CHRONIC OBSTRUCTIVE PULMONARY DISEASE
     Dosage: 160/4.5 MCG 2 PUFFS TWO TIMES A DAY
     Route: 055
     Dates: start: 2007
  10. HYDROCHLOZIDE [Concomitant]
     Indication: HYPERTENSION
     Dates: start: 2013
  11. SPIRIVA [Concomitant]
     Active Substance: TIOTROPIUM BROMIDE MONOHYDRATE
     Indication: CHRONIC OBSTRUCTIVE PULMONARY DISEASE
     Route: 055
     Dates: start: 2013

REACTIONS (8)
  - Off label use [Unknown]
  - Atrial fibrillation [Unknown]
  - Intentional product misuse [Unknown]
  - Visual impairment [Unknown]
  - Drug dose omission [Unknown]
  - Rheumatoid arthritis [Not Recovered/Not Resolved]
  - Chronic obstructive pulmonary disease [Unknown]
  - Cataract [Unknown]

NARRATIVE: CASE EVENT DATE: 201003
